FAERS Safety Report 5191496-9 (Version None)
Quarter: 2006Q4

REPORT INFORMATION
  Report Type: 
  Country: None (occurrence: None)
  Receive Date: 20061219
  Receipt Date: 20061208
  Transmission Date: 20070319
  Serious: Yes (Death, Other)
  Sender: FDA-Public Use
  Company Number: GXBR2006US02121

PATIENT
  Age: 66 Year
  Sex: Male
  Weight: 83.9 kg

DRUGS (6)
  1. AMIODARONE HCL [Suspect]
     Indication: ATRIAL FIBRILLATION
     Dosage: 200 MG, BID2SDO, ORAL; SEE IMAGE
     Route: 048
     Dates: start: 20050619, end: 20050727
  2. AMIODARONE HCL [Suspect]
     Indication: ATRIAL FIBRILLATION
     Dosage: 200 MG, BID2SDO, ORAL; SEE IMAGE
     Route: 048
     Dates: start: 20050728, end: 20050809
  3. AMIODARONE HCL [Suspect]
     Indication: ATRIAL FIBRILLATION
     Dosage: 200 MG, BID2SDO, ORAL; SEE IMAGE
     Route: 048
     Dates: start: 20050810, end: 20060812
  4. ATENOLOL [Concomitant]
  5. COUMADIN [Concomitant]
  6. LOVENOX [Concomitant]

REACTIONS (15)
  - AMNESIA [None]
  - BRADYCARDIA [None]
  - BUNDLE BRANCH BLOCK LEFT [None]
  - CONDITION AGGRAVATED [None]
  - CONFUSIONAL STATE [None]
  - COORDINATION ABNORMAL [None]
  - CREUTZFELDT-JAKOB DISEASE [None]
  - DIZZINESS [None]
  - DRY EYE [None]
  - HALLUCINATION, VISUAL [None]
  - INSOMNIA [None]
  - NERVOUS SYSTEM DISORDER [None]
  - PHOTOPHOBIA [None]
  - TREMOR [None]
  - VISUAL DISTURBANCE [None]
